FAERS Safety Report 13752650 (Version 1)
Quarter: 2017Q3

REPORT INFORMATION
  Report Type: Spontaneous
  Country: US (occurrence: US)
  Receive Date: 20170713
  Receipt Date: 20170713
  Transmission Date: 20171127
  Serious: Yes (Life-Threatening, Hospitalization)
  Sender: FDA-Public Use
  Company Number: None

PATIENT
  Age: 50 Year
  Sex: Female
  Weight: 65.25 kg

DRUGS (9)
  1. LAMICTAL [Concomitant]
     Active Substance: LAMOTRIGINE
  2. BENADRYL [Concomitant]
     Active Substance: DIPHENHYDRAMINE HYDROCHLORIDE
  3. KEPPRA [Concomitant]
     Active Substance: LEVETIRACETAM
  4. CLONAZEPAM. [Concomitant]
     Active Substance: CLONAZEPAM
  5. CITLOPRAM [Concomitant]
  6. IBUPROFEN. [Concomitant]
     Active Substance: IBUPROFEN
  7. SUDAFED [Concomitant]
     Active Substance: PSEUDOEPHEDRINE HYDROCHLORIDE
  8. ZONISAMIDE. [Suspect]
     Active Substance: ZONISAMIDE
     Indication: EPILEPSY
     Dosage: ?          OTHER STRENGTH:MG;QUANTITY:2 CAPSULE(S);?
     Route: 048
     Dates: start: 20161116, end: 20161128
  9. ACETAMINOPHEN. [Concomitant]
     Active Substance: ACETAMINOPHEN

REACTIONS (10)
  - Oesophageal pain [None]
  - Incorrect dose administered [None]
  - Incorrect drug administration duration [None]
  - Eye disorder [None]
  - Rash [None]
  - Conjunctival scar [None]
  - Neuropathy peripheral [None]
  - Stevens-Johnson syndrome [None]
  - Dry eye [None]
  - Anxiety [None]

NARRATIVE: CASE EVENT DATE: 20161128
